FAERS Safety Report 6738110-6 (Version None)
Quarter: 2010Q2

REPORT INFORMATION
  Report Type: 
  Country: None (occurrence: None)
  Receive Date: 20100520
  Receipt Date: 20100506
  Transmission Date: 20101027
  Serious: Yes (Hospitalization)
  Sender: FDA-Public Use
  Company Number: DSJ-2010-00103

PATIENT
  Age: 65 Year
  Sex: Male
  Weight: 45 kg

DRUGS (3)
  1. OLMESARTAN MEDOXOMIL [Suspect]
     Indication: ESSENTIAL HYPERTENSION
     Dosage: 20 MG (1 IN 1 D), PER ORAL
     Route: 048
     Dates: start: 20091224
  2. AMLODIN (AMLODIPINE ESILATE) (AMLODIPINE BESILATE) [Concomitant]
  3. CHOUTOUSAN (HERBAL EXTRACT NOS) [Concomitant]

REACTIONS (4)
  - BLOOD PRESSURE DECREASED [None]
  - DIZZINESS [None]
  - FALL [None]
  - MEMORY IMPAIRMENT [None]
